FAERS Safety Report 17799372 (Version 1)
Quarter: 2020Q2

REPORT INFORMATION
  Report Type: Report from Study
  Country: CA (occurrence: CA)
  Receive Date: 20200518
  Receipt Date: 20200518
  Transmission Date: 20200714
  Serious: Yes (Hospitalization, Other)
  Sender: FDA-Public Use
  Company Number: CA-PFIZER INC-2020193991

PATIENT
  Age: 47 Year
  Sex: Male

DRUGS (11)
  1. SANDOSTATIN [Suspect]
     Active Substance: OCTREOTIDE ACETATE
     Dosage: 30 MG 1 EVERY 3 WEEKS
     Route: 030
  2. SANDOSTATIN LAR DEPOT [Suspect]
     Active Substance: OCTREOTIDE ACETATE
     Dosage: 20 MG 1 DF EVERY MONTH
     Route: 030
  3. WARFARIN [Concomitant]
     Active Substance: WARFARIN
  4. PANCREATIN [Concomitant]
     Active Substance: PANCRELIPASE
  5. SANDOSTATIN [Suspect]
     Active Substance: OCTREOTIDE ACETATE
     Indication: METASTATIC CARCINOID TUMOUR
     Dosage: 100 UG, 3X/DAY 7 MONTHS
     Route: 058
  6. VENLAFAXINE [Concomitant]
     Active Substance: VENLAFAXINE HYDROCHLORIDE
  7. MORPHINE SULFATE. [Suspect]
     Active Substance: MORPHINE SULFATE
     Route: 065
  8. SANDOSTATIN LAR DEPOT [Suspect]
     Active Substance: OCTREOTIDE ACETATE
     Dosage: 30 MG 1 EVERY 3 WEEKS
     Route: 030
  9. PANTOPRAZOLE [Concomitant]
     Active Substance: PANTOPRAZOLE
  10. SANDOSTATIN LAR DEPOT [Suspect]
     Active Substance: OCTREOTIDE ACETATE
     Indication: METASTATIC CARCINOID TUMOUR
     Dosage: 30 MG 1 EVERY 1 MONTHS
     Route: 030
  11. HYDROMORPHONE HYDROCHLORIDE. [Suspect]
     Active Substance: HYDROMORPHONE HYDROCHLORIDE

REACTIONS (19)
  - Underdose [Unknown]
  - Diarrhoea [Unknown]
  - Inappropriate schedule of product administration [Unknown]
  - Ligament sprain [Unknown]
  - Blood pressure systolic increased [Unknown]
  - Metastases to lung [Unknown]
  - Body temperature decreased [Unknown]
  - Drug hypersensitivity [Unknown]
  - Blood pressure increased [Unknown]
  - Injection site pain [Unknown]
  - Miliaria [Unknown]
  - Needle issue [Unknown]
  - Pain in extremity [Unknown]
  - Pruritus [Unknown]
  - Respiratory tract infection bacterial [Unknown]
  - Metastases to lymph nodes [Unknown]
  - Urticaria [Unknown]
  - Intestinal obstruction [Unknown]
  - Musculoskeletal pain [Unknown]
